FAERS Safety Report 8852252 (Version 1)
Quarter: 2012Q4

REPORT INFORMATION
  Report Type: 
  Country: US (occurrence: US)
  Receive Date: 20121022
  Receipt Date: 20121022
  Transmission Date: 20130627
  Serious: No
  Sender: FDA-Public Use
  Company Number: US-MYLANLABS-2012S1002937

PATIENT
  Age: 71 Year
  Sex: Female
  Weight: 55.34 kg

DRUGS (5)
  1. CARVEDILOL [Suspect]
     Indication: BLOOD PRESSURE INCREASED
     Route: 048
     Dates: start: 20120119, end: 20120204
  2. VIVELLE DOT [Concomitant]
  3. FLEXERIL [Concomitant]
  4. TYLENOL PM [Concomitant]
  5. AMLODIPINE [Concomitant]

REACTIONS (4)
  - Palpitations [Recovered/Resolved]
  - Heart rate irregular [Recovered/Resolved]
  - Heart rate increased [Recovered/Resolved]
  - Dyspnoea [Recovered/Resolved]
